FAERS Safety Report 18431882 (Version 1)
Quarter: 2020Q4

REPORT INFORMATION
  Report Type: Spontaneous
  Country: IE (occurrence: GB)
  Receive Date: 20201027
  Receipt Date: 20201027
  Transmission Date: 20210114
  Serious: Yes (Hospitalization, Other)
  Sender: FDA-Public Use
  Company Number: IE-GLAXOSMITHKLINE-GB2020EME210729

PATIENT

DRUGS (3)
  1. VENTOLIN [Suspect]
     Active Substance: ALBUTEROL SULFATE
     Dosage: 100 UG, 1/2 PUFFS TO BE INHALED 4 TIMES A DAY WHEN NEEDED
     Route: 055
     Dates: start: 20171030
  2. VENTOLIN [Suspect]
     Active Substance: ALBUTEROL SULFATE
     Indication: ASTHMA
     Dosage: 100 UG, 1/2 PUFFS TO BE INHALED 4 TIMES A DAY WHEN NEEDED
     Route: 055
     Dates: start: 20171018
  3. FLUTIFORM [Suspect]
     Active Substance: FLUTICASONE PROPIONATE\FORMOTEROL FUMARATE
     Indication: ASTHMA
     Dosage: 2 PUFF(S), BID, 250/10 MCG, 120 DOSES
     Route: 055
     Dates: start: 20170727

REACTIONS (3)
  - Asthma [Unknown]
  - Incorrect dose administered [Unknown]
  - Drug dependence [Unknown]
